FAERS Safety Report 10790747 (Version 2)
Quarter: 2015Q1

REPORT INFORMATION
  Report Type: Spontaneous
  Country: US (occurrence: US)
  Receive Date: 20150212
  Receipt Date: 20150227
  Transmission Date: 20150721
  Serious: Yes (Hospitalization, Other)
  Sender: FDA-Public Use
  Company Number: US-PFIZER INC-2015053809

PATIENT
  Age: 42 Year
  Sex: Female
  Weight: 73 kg

DRUGS (2)
  1. LYRICA [Suspect]
     Active Substance: PREGABALIN
     Dosage: 50 MG, 3X/DAY
     Dates: start: 201411
  2. LYRICA [Suspect]
     Active Substance: PREGABALIN
     Indication: PAIN
     Dosage: UNK
     Dates: start: 201410

REACTIONS (2)
  - Weight increased [Not Recovered/Not Resolved]
  - Bladder disorder [Recovered/Resolved]

NARRATIVE: CASE EVENT DATE: 2014
